FAERS Safety Report 5035020-X (Version None)
Quarter: 2006Q2

REPORT INFORMATION
  Report Type: 
  Country: None (occurrence: None)
  Receive Date: 20060518
  Receipt Date: 20050913
  Transmission Date: 20061013
  Serious: Yes (Other)
  Sender: FDA-Public Use
  Company Number: 2005130427

PATIENT
  Age: 32 Year
  Weight: 58.0604 kg

DRUGS (3)
  1. DEPO-PROVERA [Suspect]
     Indication: CONTRACEPTION
     Dosage: SEE IMAGE
     Dates: start: 20041118, end: 20041118
  2. DEPO-PROVERA [Suspect]
     Indication: CONTRACEPTION
     Dosage: SEE IMAGE
     Dates: start: 20050427, end: 20050427
  3. DEPO-PROVERA [Suspect]
     Indication: CONTRACEPTION
     Dosage: SEE IMAGE
     Dates: start: 20050714, end: 20050714

REACTIONS (2)
  - METRORRHAGIA [None]
  - UNINTENDED PREGNANCY [None]
